FAERS Safety Report 4607196-7 (Version None)
Quarter: 2005Q1

REPORT INFORMATION
  Report Type: 
  Country: None (occurrence: None)
  Receive Date: 20050310
  Receipt Date: 20050222
  Transmission Date: 20050727
  Serious: Yes (Hospitalization)
  Sender: FDA-Public Use
  Company Number: 2005BI001501

PATIENT
  Age: 23 Year
  Sex: Male
  Weight: 79.3795 kg

DRUGS (1)
  1. AVONEX [Suspect]
     Indication: MULTIPLE SCLEROSIS
     Dosage: 30 UG; QW; IM
     Route: 030
     Dates: start: 20040801

REACTIONS (10)
  - AMNESIA [None]
  - ANXIETY [None]
  - CONDITION AGGRAVATED [None]
  - CONVERSION DISORDER [None]
  - DIFFICULTY IN WALKING [None]
  - HEAD INJURY [None]
  - HYPOAESTHESIA [None]
  - LACERATION [None]
  - PARALYSIS [None]
  - WEIGHT DECREASED [None]
